FAERS Safety Report 4983868-X (Version None)
Quarter: 2006Q2

REPORT INFORMATION
  Report Type: 
  Country: None (occurrence: None)
  Receive Date: 20060426
  Receipt Date: 20060104
  Transmission Date: 20061013
  Serious: Yes (Hospitalization)
  Sender: FDA-Public Use
  Company Number: US-MERCK-0601USA00586

PATIENT
  Age: 62 Year
  Sex: Male
  Weight: 73 kg

DRUGS (19)
  1. VIOXX [Suspect]
     Indication: GOUTY ARTHRITIS
     Route: 048
     Dates: start: 20031103, end: 20040715
  2. CELEBREX [Concomitant]
     Indication: ARTHRITIS
     Route: 065
     Dates: start: 20030101, end: 20040715
  3. HYDROCODONE BITARTRATE [Concomitant]
     Indication: PAIN
     Route: 065
     Dates: start: 20030101, end: 20040715
  4. PREDNISONE [Concomitant]
     Indication: PAIN
     Route: 065
     Dates: start: 20030101, end: 20040715
  5. ALLOPURINOL [Concomitant]
     Indication: GOUT
     Route: 065
     Dates: start: 20030101, end: 20040715
  6. NABUMETONE [Concomitant]
     Indication: PAIN
     Route: 065
     Dates: start: 20030101, end: 20040715
  7. INDOCIN [Concomitant]
     Indication: ARTHRITIS
     Route: 065
     Dates: start: 20030101, end: 20040715
  8. ULTRACET [Concomitant]
     Indication: PAIN
     Route: 065
     Dates: start: 20030101, end: 20040715
  9. CLINORIL [Concomitant]
     Indication: PAIN
     Route: 065
     Dates: start: 20030101, end: 20040715
  10. DICLOFENAC SODIUM [Concomitant]
     Indication: PAIN
     Route: 065
     Dates: start: 20030101, end: 20040715
  11. ACETAMINOPHEN [Concomitant]
     Indication: PAIN
     Route: 065
     Dates: start: 20030101, end: 20040715
  12. NAPROXEN [Concomitant]
     Indication: PAIN
     Route: 065
     Dates: start: 20030101
  13. CLARINEX [Concomitant]
     Indication: SEASONAL ALLERGY
     Route: 065
  14. LEVAQUIN [Concomitant]
     Indication: BACTERIAL INFECTION
     Route: 065
  15. VIAGRA [Concomitant]
     Indication: ERECTILE DYSFUNCTION
     Route: 065
  16. CIALIS [Concomitant]
     Indication: ERECTILE DYSFUNCTION
     Route: 065
  17. AMBIEN [Concomitant]
     Indication: SLEEP DISORDER
     Route: 065
  18. LORAZEPAM [Concomitant]
     Indication: ANXIETY
     Route: 065
  19. OXYBUTYNIN [Concomitant]
     Indication: HYPERTONIC BLADDER
     Route: 065

REACTIONS (8)
  - ACCELERATED HYPERTENSION [None]
  - BLOOD CHOLESTEROL INCREASED [None]
  - CEREBROVASCULAR ACCIDENT [None]
  - DYSPEPSIA [None]
  - EPISTAXIS [None]
  - HERPES VIRUS INFECTION [None]
  - HYPERTENSION [None]
  - HYPERTENSIVE HEART DISEASE [None]
